FAERS Safety Report 15494792 (Version 3)
Quarter: 2018Q4

REPORT INFORMATION
  Report Type: Spontaneous
  Country: ES (occurrence: ES)
  Receive Date: 20181012
  Receipt Date: 20181207
  Transmission Date: 20190205
  Serious: Yes (Hospitalization)
  Sender: FDA-Public Use
  Company Number: ES-ASTRAZENECA-2018SF29494

PATIENT
  Sex: Male

DRUGS (36)
  1. TAMSULOSIN [Concomitant]
     Active Substance: TAMSULOSIN
     Indication: BENIGN PROSTATIC HYPERPLASIA
     Dosage: 0.4 MG, UNK
     Dates: start: 20150218
  2. ATORVASTATIN [Concomitant]
     Active Substance: ATORVASTATIN
     Indication: DYSLIPIDAEMIA
     Route: 065
     Dates: start: 20140425
  3. ASA [Concomitant]
     Active Substance: ASPIRIN
     Indication: PROPHYLAXIS
     Dosage: UNK
     Route: 065
     Dates: start: 20140510
  4. LCZ696 [Suspect]
     Active Substance: SACUBITRIL\VALSARTAN
     Indication: CARDIAC FAILURE
     Dosage: CODE NOT BROKEN
     Route: 048
     Dates: start: 20150617, end: 20161030
  5. PARACETAMOL [Concomitant]
     Active Substance: ACETAMINOPHEN
     Indication: ARTHRITIS
     Dosage: 1 G TID
     Dates: start: 20110520
  6. BUDESONIDE W/FORMOTEROL [Concomitant]
     Active Substance: BUDESONIDE\FORMOTEROL
     Indication: EXCESSIVE EXERCISE
     Dosage: 160/4.5 UG, UNK
     Route: 065
     Dates: start: 20071011
  7. UNIKET [Concomitant]
     Active Substance: ISOSORBIDE MONONITRATE
     Indication: PROPHYLAXIS
     Dosage: 20.0MG UNKNOWN
     Dates: start: 20180321
  8. FORMOTEROL + BUDESONIDA AEROSOL [Suspect]
     Active Substance: BUDESONIDE\FORMOTEROL FUMARATE DIHYDRATE
     Indication: EXCESSIVE EXERCISE
     Dosage: 160/4.5 UG
     Route: 055
     Dates: start: 2007
  9. FUROSEMIDE. [Concomitant]
     Active Substance: FUROSEMIDE
     Indication: HYPERTENSION
     Route: 048
     Dates: start: 20141212
  10. FUROSEMIDE. [Concomitant]
     Active Substance: FUROSEMIDE
     Indication: CARDIAC FAILURE
     Dosage: UNK
     Route: 048
  11. FUROSEMIDE. [Concomitant]
     Active Substance: FUROSEMIDE
     Indication: HYPERTENSION
     Dosage: UNK
     Route: 048
  12. ATORVASTATIN [Concomitant]
     Active Substance: ATORVASTATIN
     Indication: CARDIAC FAILURE
     Route: 065
     Dates: start: 20140425
  13. UNIKET [Concomitant]
     Active Substance: ISOSORBIDE MONONITRATE
     Indication: CARDIAC FAILURE
     Dosage: 20.0MG UNKNOWN
     Dates: start: 20180321
  14. UNIKET [Concomitant]
     Active Substance: ISOSORBIDE MONONITRATE
     Indication: PROPHYLAXIS
     Dosage: 40.0MG UNKNOWN
     Dates: start: 20140502, end: 20140516
  15. PARACETAMOL [Concomitant]
     Active Substance: ACETAMINOPHEN
     Indication: PAIN
     Dosage: 1 G TID
     Dates: start: 20110520
  16. PANTOPRAZOLE [Concomitant]
     Active Substance: PANTOPRAZOLE
     Indication: PROPHYLAXIS
     Dosage: 40.0MG UNKNOWN
     Route: 065
     Dates: start: 20161107
  17. BISOPROLOL [Concomitant]
     Active Substance: BISOPROLOL
     Indication: HYPERTENSION
     Dosage: UNK
     Route: 048
     Dates: start: 20141204
  18. ATORVASTATIN [Concomitant]
     Active Substance: ATORVASTATIN
     Indication: DYSLIPIDAEMIA
     Dosage: UNK
     Route: 065
  19. ATORVASTATIN [Concomitant]
     Active Substance: ATORVASTATIN
     Indication: CARDIAC FAILURE
     Dosage: UNK
     Route: 065
  20. ELIQUIS [Concomitant]
     Active Substance: APIXABAN
     Indication: CARDIAC FAILURE
     Dosage: 2.5 MG, BID
     Dates: start: 20170307
  21. BISOPROLOL [Concomitant]
     Active Substance: BISOPROLOL
     Dosage: 2.5 MG, QD
     Route: 048
     Dates: start: 20141204
  22. SYMBICORT [Concomitant]
     Active Substance: BUDESONIDE\FORMOTEROL FUMARATE DIHYDRATE
     Indication: EXCESSIVE EXERCISE
     Dosage: 160/4.5 UG
     Dates: start: 20071011
  23. FORMOTEROL + BUDESONIDA AEROSOL [Suspect]
     Active Substance: BUDESONIDE\FORMOTEROL FUMARATE DIHYDRATE
     Indication: PRODUCT USED FOR UNKNOWN INDICATION
     Dosage: 160/4.5 UG
     Route: 055
     Dates: start: 2007
  24. FORMOTEROL + BUDESONIDA AEROSOL [Suspect]
     Active Substance: BUDESONIDE\FORMOTEROL FUMARATE DIHYDRATE
     Indication: EXCESSIVE EXERCISE
     Dosage: UNK
     Route: 055
     Dates: start: 20171011
  25. SINTROM [Suspect]
     Active Substance: ACENOCOUMAROL
     Indication: ATRIAL FIBRILLATION
     Route: 048
     Dates: start: 20141202
  26. DIOVAN [Suspect]
     Active Substance: VALSARTAN
     Indication: CARDIAC FAILURE
     Dosage: CODE NOT BROKEN
     Route: 048
     Dates: start: 20161228
  27. FUROSEMIDE. [Concomitant]
     Active Substance: FUROSEMIDE
     Indication: CARDIAC FAILURE
     Route: 048
     Dates: start: 20141212
  28. MESALAZINE [Concomitant]
     Active Substance: MESALAMINE
     Indication: PRODUCT USED FOR UNKNOWN INDICATION
     Dosage: UNK
     Dates: start: 20140510
  29. EPLERENONE. [Concomitant]
     Active Substance: EPLERENONE
     Indication: CARDIAC FAILURE
     Dates: start: 20150715
  30. EBASTINE [Concomitant]
     Active Substance: EBASTINE
     Indication: HYPERSENSITIVITY
     Dosage: 10.0MG UNKNOWN
     Route: 065
     Dates: start: 20071011
  31. UNIKET [Concomitant]
     Active Substance: ISOSORBIDE MONONITRATE
     Indication: CARDIAC FAILURE
     Dosage: 40.0MG UNKNOWN
     Dates: start: 20140502, end: 20140516
  32. FORMOTEROL + BUDESONIDA AEROSOL [Suspect]
     Active Substance: BUDESONIDE\FORMOTEROL FUMARATE DIHYDRATE
     Indication: PRODUCT USED FOR UNKNOWN INDICATION
     Dosage: UNK
     Route: 055
     Dates: start: 20171011
  33. FERRO SANOL [Concomitant]
     Active Substance: FERROUS GLYCINE SULFATE
     Indication: ANAEMIA
     Dosage: 100.0MG UNKNOWN
     Route: 065
     Dates: start: 20180209
  34. OMEPRAZOLE. [Concomitant]
     Active Substance: OMEPRAZOLE
     Indication: PROPHYLAXIS
     Dosage: 40.0MG UNKNOWN
     Route: 065
     Dates: start: 20141027
  35. BISOPROLOL [Concomitant]
     Active Substance: BISOPROLOL
     Indication: HYPERTENSION
     Route: 048
     Dates: start: 20141211
  36. RAMIPRIL. [Concomitant]
     Active Substance: RAMIPRIL
     Indication: HYPERTENSION
     Dosage: 2.5MG UNKNOWN
     Dates: start: 20140930

REACTIONS (4)
  - Acute kidney injury [Recovered/Resolved]
  - Anaemia [Recovered/Resolved]
  - Acute myocardial infarction [Recovered/Resolved]
  - Pharyngeal haemorrhage [Recovered/Resolved with Sequelae]

NARRATIVE: CASE EVENT DATE: 20160502
